FAERS Safety Report 7882008-7 (Version None)
Quarter: 2011Q4

REPORT INFORMATION
  Report Type: 
  Country: None (occurrence: None)
  Receive Date: 20111101
  Receipt Date: 20110607
  Transmission Date: 20120403
  Serious: No
  Sender: FDA-Public Use
  Company Number: US-AMGEN-USASP2011029219

PATIENT
  Sex: Male

DRUGS (2)
  1. ENBREL [Suspect]
     Indication: PSORIATIC ARTHROPATHY
     Dosage: 50 MG, QWK
     Dates: start: 20030131
  2. METHOTREXATE [Concomitant]
     Dosage: 1 MG, UNK

REACTIONS (2)
  - PSORIATIC ARTHROPATHY [None]
  - WEIGHT INCREASED [None]
